FAERS Safety Report 15106181 (Version 1)
Quarter: 2018Q3

REPORT INFORMATION
  Report Type: Other
  Country: IT (occurrence: IT)
  Receive Date: 20180704
  Receipt Date: 20180704
  Transmission Date: 20181010
  Serious: Yes (Death, Other)
  Sender: FDA-Public Use
  Company Number: IT-ACTELION-A-CH2018-174794

PATIENT
  Age: 69 Year
  Sex: Male

DRUGS (2)
  1. VENTAVIS [Suspect]
     Active Substance: ILOPROST
     Indication: SCLERODERMA ASSOCIATED DIGITAL ULCER
     Route: 055
  2. BOSENTAN. [Suspect]
     Active Substance: BOSENTAN
     Indication: SCLERODERMA ASSOCIATED DIGITAL ULCER
     Dosage: UNK
     Route: 048

REACTIONS (2)
  - Coronary artery disease [Fatal]
  - Skin ulcer [Unknown]
